FAERS Safety Report 24130211 (Version 1)
Quarter: 2024Q3

REPORT INFORMATION
  Report Type: Spontaneous
  Country: US (occurrence: US)
  Receive Date: 20240724
  Receipt Date: 20240724
  Transmission Date: 20241017
  Serious: No
  Sender: STEMLINE THERAPEUTICS
  Company Number: US-Stemline Therapeutics, Inc.-2024ST003347

PATIENT
  Age: 54 Year
  Sex: Female

DRUGS (3)
  1. ORSERDU [Suspect]
     Active Substance: ELACESTRANT
     Indication: Product used for unknown indication
     Route: 048
     Dates: start: 20230627
  2. TRULICITY [Concomitant]
     Active Substance: DULAGLUTIDE
     Indication: Product used for unknown indication
  3. OXYCONTIN [Concomitant]
     Active Substance: OXYCODONE HYDROCHLORIDE
     Indication: Product used for unknown indication

REACTIONS (7)
  - Lymphoedema [Unknown]
  - Pain [Unknown]
  - Pustule [Unknown]
  - Headache [Unknown]
  - Nausea [Unknown]
  - Asthenia [Unknown]
  - Rash [Unknown]
